FAERS Safety Report 17267120 (Version 2)
Quarter: 2024Q1

REPORT INFORMATION
  Report Type: Spontaneous
  Country: US (occurrence: US)
  Receive Date: 20200114
  Receipt Date: 20240205
  Transmission Date: 20240409
  Serious: Yes (Death, Life-Threatening, Other)
  Sender: FDA-Public Use
  Company Number: US-AMGEN-USASP2020004114

PATIENT

DRUGS (5)
  1. CARFILZOMIB [Suspect]
     Active Substance: CARFILZOMIB
     Indication: Plasma cell myeloma
     Dosage: 20 MILLIGRAM/SQ. METER, ON DAYS 1 AND 2 CYCLE 1
     Route: 042
  2. CARFILZOMIB [Suspect]
     Active Substance: CARFILZOMIB
     Dosage: 27, OR 36, OR 45, OR 56 MG/M2
     Route: 042
  3. CARFILZOMIB [Suspect]
     Active Substance: CARFILZOMIB
     Dosage: 36 MILLIGRAM/SQ. METER DAYS 1,2,15,16 EVERY 28 DAYS FOR UP TO 2 YEARS
     Route: 042
  4. BENDAMUSTINE [Suspect]
     Active Substance: BENDAMUSTINE
     Indication: Plasma cell myeloma
     Dosage: ON DAYS 1, 2, AT 70 (DOSE LEVELS 1 AND 2) OR 90 MG/M2 (DOSE LEVELS 3-5).
     Route: 042
  5. DEXAMETHASONE [Concomitant]
     Active Substance: DEXAMETHASONE
     Indication: Plasma cell myeloma
     Dosage: 20 MILLIGRAM, ON DAYS 1, 2, 8, 9,15,16, 22, 23 (ORAL ORR IV)
     Route: 065

REACTIONS (17)
  - Septic shock [Fatal]
  - Plasma cell myeloma [Fatal]
  - Thrombocytopenia [Unknown]
  - Pneumonia [Unknown]
  - Anaemia [Unknown]
  - Lymphopenia [Unknown]
  - Neutropenia [Unknown]
  - Upper respiratory tract infection [Unknown]
  - Acute kidney injury [Unknown]
  - Infection [Unknown]
  - Blood creatinine increased [Unknown]
  - Weight decreased [Unknown]
  - Embolism [Unknown]
  - Disease progression [Unknown]
  - Therapy partial responder [Unknown]
  - Diarrhoea [Unknown]
  - Off label use [Unknown]
